FAERS Safety Report 5080789-1 (Version None)
Quarter: 2006Q3

REPORT INFORMATION
  Report Type: 
  Country: None (occurrence: None)
  Receive Date: 20060809
  Receipt Date: 20060803
  Transmission Date: 20061208
  Serious: Yes (Hospitalization, Other)
  Sender: FDA-Public Use
  Company Number: GXKR2006GB04497

PATIENT
  Age: 7 Year
  Sex: Female
  Weight: 32.7 kg

DRUGS (2)
  1. RANITIDINE [Suspect]
     Dosage: 100 MG, ORAL
     Route: 048
     Dates: start: 20060707, end: 20060707
  2. PENICILLIN [Suspect]
     Indication: PHARYNGITIS
     Dosage: ORAL
     Route: 048
     Dates: end: 20060707

REACTIONS (3)
  - PAIN [None]
  - SWELLING FACE [None]
  - URTICARIA [None]
